FAERS Safety Report 22622674 (Version 2)
Quarter: 2023Q2

REPORT INFORMATION
  Report Type: Report from Study
  Country: CA (occurrence: CA)
  Receive Date: 20230621
  Receipt Date: 20230628
  Transmission Date: 20230721
  Serious: Yes (Other)
  Sender: FDA-Public Use
  Company Number: CA-JNJFOC-20230633541

PATIENT
  Age: 16 Year
  Sex: Male

DRUGS (1)
  1. REMICADE [Suspect]
     Active Substance: INFLIXIMAB
     Indication: Colitis ulcerative
     Dosage: THE PATIENT RECEIVED 2ND INDUCTION DOSE OF INFLIXIMAB, RECOMBINANT ON 13-JUN-2023 AT DOSE OF 518 MG
     Route: 042
     Dates: start: 2023

REACTIONS (3)
  - Haematochezia [Unknown]
  - General physical health deterioration [Unknown]
  - Frequent bowel movements [Unknown]

NARRATIVE: CASE EVENT DATE: 20230612
